FAERS Safety Report 5890266-3 (Version None)
Quarter: 2008Q3

REPORT INFORMATION
  Report Type: 
  Country: None (occurrence: None)
  Receive Date: 20080919
  Receipt Date: 20080907
  Transmission Date: 20090109
  Serious: Yes (Other)
  Sender: FDA-Public Use
  Company Number: US-PFIZER INC-2008078498

PATIENT
  Sex: Female
  Weight: 58.5 kg

DRUGS (8)
  1. CHANTIX [Suspect]
     Indication: SMOKING CESSATION THERAPY
     Dates: start: 20080826, end: 20080906
  2. CELLCEPT [Concomitant]
     Indication: RENAL DISORDER
  3. ANTIHYPERTENSIVES [Concomitant]
     Indication: HYPERTENSION
  4. PREDNISONE [Concomitant]
  5. METHADONE HCL [Concomitant]
     Indication: PAIN
  6. CALCIUM GLUCONATE [Concomitant]
  7. MULTI-VITAMINS [Concomitant]
  8. ATIVAN [Concomitant]
     Indication: ANXIETY

REACTIONS (2)
  - ANXIETY [None]
  - DEPRESSION [None]
